FAERS Safety Report 17119288 (Version 2)
Quarter: 2020Q2

REPORT INFORMATION
  Report Type: Spontaneous
  Country: US (occurrence: US)
  Receive Date: 20191206
  Receipt Date: 20200402
  Transmission Date: 20200713
  Serious: No
  Sender: FDA-Public Use
  Company Number: US-UCBSA-2017030821

PATIENT
  Sex: Male
  Weight: 73.92 kg

DRUGS (3)
  1. NEUPRO [Suspect]
     Active Substance: ROTIGOTINE
     Indication: PARKINSON^S DISEASE
     Dosage: 1MG DAILY
     Dates: start: 2017, end: 2017
  2. NEUPRO [Suspect]
     Active Substance: ROTIGOTINE
     Dosage: 2MG DAILY
     Dates: start: 2017, end: 2017
  3. NEUPRO [Suspect]
     Active Substance: ROTIGOTINE
     Dosage: 1MG DAILY
     Dates: start: 201709

REACTIONS (3)
  - Adverse event [Not Recovered/Not Resolved]
  - Parkinson^s disease [Recovering/Resolving]
  - Therapeutic product effect incomplete [Unknown]

NARRATIVE: CASE EVENT DATE: 2017
